FAERS Safety Report 6642241-9 (Version None)
Quarter: 2010Q1

REPORT INFORMATION
  Report Type: 
  Country: None (occurrence: None)
  Receive Date: 20100319
  Receipt Date: 20100304
  Transmission Date: 20100710
  Serious: Yes (Other)
  Sender: FDA-Public Use
  Company Number: DE-JNJFOC-20100302943

PATIENT
  Age: 74 Year
  Sex: Female

DRUGS (6)
  1. GALANTAMINE HYDROBROMIDE [Suspect]
     Indication: DRUG USE FOR UNKNOWN INDICATION
     Route: 048
  2. CARBIMAZOLE [Concomitant]
     Route: 065
  3. ATACAND [Concomitant]
     Route: 065
  4. ANTIHYPERTENSIVE (UNSPECIFIED) [Concomitant]
     Indication: HYPERTENSION
     Route: 065
  5. AMLODIPINE [Concomitant]
     Route: 065
  6. ACETYLSALICYLIC ACID SRT [Concomitant]
     Route: 065

REACTIONS (4)
  - BACK PAIN [None]
  - MULTIPLE DRUG OVERDOSE ACCIDENTAL [None]
  - OSTEOPOROSIS [None]
  - SPINAL FRACTURE [None]
